FAERS Safety Report 24210487 (Version 3)
Quarter: 2024Q4

REPORT INFORMATION
  Report Type: Spontaneous
  Country: GB (occurrence: GB)
  Receive Date: 20240814
  Receipt Date: 20241003
  Transmission Date: 20250114
  Serious: Yes (Hospitalization)
  Sender: VERTEX
  Company Number: GB-VERTEX PHARMACEUTICALS-2024-013098

PATIENT
  Sex: Female

DRUGS (10)
  1. ELEXACAFTOR\IVACAFTOR\TEZACAFTOR [Suspect]
     Active Substance: ELEXACAFTOR\IVACAFTOR\TEZACAFTOR
     Indication: Cystic fibrosis
     Dosage: (75 MG IVACAFTOR/ 50 MG TEZACAFTOR/ 100 MG ELEXACAFTOR) 2 TABLETS IN THE MORNING
     Route: 048
  2. ELEXACAFTOR\IVACAFTOR\TEZACAFTOR [Suspect]
     Active Substance: ELEXACAFTOR\IVACAFTOR\TEZACAFTOR
     Dosage: REDUCED DOSE
     Route: 048
  3. ELEXACAFTOR\IVACAFTOR\TEZACAFTOR [Suspect]
     Active Substance: ELEXACAFTOR\IVACAFTOR\TEZACAFTOR
     Dosage: 2 TABS IN AM
     Route: 048
  4. KALYDECO [Suspect]
     Active Substance: IVACAFTOR
     Indication: Cystic fibrosis
     Dosage: UNK
     Route: 048
  5. KALYDECO [Suspect]
     Active Substance: IVACAFTOR
     Dosage: REDUCED DOSE
     Route: 048
  6. KALYDECO [Suspect]
     Active Substance: IVACAFTOR
     Dosage: UNK FREQ
     Route: 048
  7. PULMOZYME [Concomitant]
     Active Substance: DORNASE ALFA
  8. VANTOBRA [Concomitant]
  9. COLOMYCIN [Concomitant]
  10. AZTREONAM [Concomitant]
     Active Substance: AZTREONAM

REACTIONS (1)
  - Lower respiratory tract infection [Unknown]

NARRATIVE: CASE EVENT DATE: 20240101
